FAERS Safety Report 20127962 (Version 1)
Quarter: 2021Q4

REPORT INFORMATION
  Report Type: Spontaneous
  Country: US (occurrence: None)
  Receive Date: 20211129
  Receipt Date: 20211129
  Transmission Date: 20220303
  Serious: No
  Sender: FDA-Public Use
  Company Number: US-ROCHE-2822542

PATIENT
  Age: 77 Year
  Sex: Male
  Weight: 92.162 kg

DRUGS (6)
  1. HERCEPTIN [Suspect]
     Active Substance: TRASTUZUMAB
     Indication: Salivary gland cancer
     Dosage: ONGOING: YES
     Route: 041
     Dates: start: 20210211
  2. PROTONIX [Concomitant]
     Active Substance: PANTOPRAZOLE SODIUM
     Route: 048
     Dates: start: 20210209
  3. AMOXICILLIN [Concomitant]
     Active Substance: AMOXICILLIN
     Route: 048
     Dates: start: 20210209
  4. CRESTOR [Concomitant]
     Active Substance: ROSUVASTATIN CALCIUM
     Route: 048
     Dates: start: 20210209
  5. OXYCODONE HYDROCHLORIDE [Concomitant]
     Active Substance: OXYCODONE HYDROCHLORIDE
     Route: 048
     Dates: start: 20210209
  6. TIZANIDINE HYDROCHLORIDE [Concomitant]
     Active Substance: TIZANIDINE HYDROCHLORIDE
     Route: 048
     Dates: start: 20210209

REACTIONS (2)
  - Off label use [Unknown]
  - No adverse event [Unknown]

NARRATIVE: CASE EVENT DATE: 20210211
